FAERS Safety Report 7622680-X (Version None)
Quarter: 2011Q3

REPORT INFORMATION
  Report Type: 
  Country: None (occurrence: None)
  Receive Date: 20110701
  Receipt Date: 20100901
  Transmission Date: 20111222
  Serious: Yes (Hospitalization)
  Sender: FDA-Public Use
  Company Number: 7015082

PATIENT
  Age: 21 Year
  Sex: Female
  Weight: 82 kg

DRUGS (2)
  1. REBIF [Suspect]
     Indication: RELAPSING-REMITTING MULTIPLE SCLEROSIS
     Dosage: 44 MCG, 3 IN 1 WK, SUBCUTANEOUS
     Route: 058
     Dates: start: 20090801
  2. TOPAMAX [Concomitant]

REACTIONS (9)
  - CHILLS [None]
  - DEHYDRATION [None]
  - PYREXIA [None]
  - INJECTION SITE ERYTHEMA [None]
  - BACK PAIN [None]
  - WHITE BLOOD CELL COUNT INCREASED [None]
  - MULTIPLE SCLEROSIS RELAPSE [None]
  - MIGRAINE [None]
  - INFLUENZA LIKE ILLNESS [None]
